FAERS Safety Report 24237126 (Version 1)
Quarter: 2024Q3

REPORT INFORMATION
  Report Type: Report from Study
  Country: US (occurrence: None)
  Receive Date: 20240822
  Receipt Date: 20240822
  Transmission Date: 20241017
  Serious: Yes (Other)
  Sender: ASTRAZENECA
  Company Number: 2024A187226

PATIENT
  Sex: Female

DRUGS (1)
  1. TAGRISSO [Suspect]
     Active Substance: OSIMERTINIB
     Route: 048
     Dates: start: 2023

REACTIONS (5)
  - Intervertebral disc protrusion [Unknown]
  - Dry skin [Unknown]
  - Onychoclasis [Unknown]
  - Alopecia [Unknown]
  - Gait disturbance [Unknown]
